FAERS Safety Report 9786103 (Version 5)
Quarter: 2014Q1

REPORT INFORMATION
  Report Type: Report from Study
  Country: JP (occurrence: JP)
  Receive Date: 20131227
  Receipt Date: 20140207
  Transmission Date: 20141002
  Serious: Yes (Hospitalization)
  Sender: FDA-Public Use
  Company Number: JP-JNJFOC-20131215737

PATIENT
  Age: 3 Year
  Sex: Female
  Weight: 11.5 kg

DRUGS (20)
  1. REMICADE [Suspect]
     Indication: KAWASAKI^S DISEASE
     Route: 042
     Dates: start: 20131201, end: 201312
  2. REMICADE [Suspect]
     Indication: KAWASAKI^S DISEASE
     Dosage: RESTARTED
     Route: 042
     Dates: start: 20131222
  3. REMICADE [Suspect]
     Indication: KAWASAKI^S DISEASE
     Route: 042
     Dates: start: 20131130
  4. NEORAL [Suspect]
     Indication: KAWASAKI^S DISEASE
     Dosage: 0.6 ML OF DAILY DOSE
     Route: 048
     Dates: start: 20131217, end: 20131220
  5. FROBEN [Concomitant]
     Route: 048
     Dates: start: 20131127, end: 20131130
  6. ASPIRIN [Concomitant]
     Indication: KAWASAKI^S DISEASE
     Route: 048
     Dates: start: 20131206
  7. ASPIRIN [Concomitant]
     Indication: KAWASAKI^S DISEASE
     Route: 048
     Dates: start: 20131130
  8. ASPIRIN [Concomitant]
     Indication: KAWASAKI^S DISEASE
     Route: 048
     Dates: start: 20131217
  9. CALONAL [Concomitant]
     Indication: KAWASAKI^S DISEASE
     Route: 065
     Dates: start: 20131203
  10. SANDIMMUN [Concomitant]
     Route: 042
     Dates: start: 20131204, end: 20131217
  11. MIRACLID [Concomitant]
     Route: 065
     Dates: start: 20131206, end: 20131217
  12. ANGINAL [Concomitant]
     Route: 048
     Dates: start: 20131206, end: 20131217
  13. WARFARIN [Concomitant]
     Indication: THROMBOSIS PROPHYLAXIS
     Route: 048
     Dates: start: 20140117
  14. WARFARIN [Concomitant]
     Indication: THROMBOSIS PROPHYLAXIS
     Route: 048
     Dates: start: 201401
  15. WARFARIN [Concomitant]
     Indication: THROMBOSIS PROPHYLAXIS
     Route: 048
     Dates: start: 20131217
  16. WARFARIN [Concomitant]
     Indication: THROMBOSIS PROPHYLAXIS
     Route: 048
     Dates: start: 20131211
  17. WARFARIN [Concomitant]
     Indication: THROMBOSIS PROPHYLAXIS
     Route: 048
     Dates: start: 20131213
  18. CLAFORAN [Concomitant]
     Indication: INFECTION
     Route: 042
     Dates: start: 20131219
  19. FREEZE-DRIED SULFONATED HUMAN NORMAL IMMUNOGLOBULIN [Concomitant]
     Route: 065
     Dates: start: 20131204
  20. FREEZE-DRIED SULFONATED HUMAN NORMAL IMMUNOGLOBULIN [Concomitant]
     Route: 065
     Dates: start: 20131128

REACTIONS (2)
  - Kawasaki^s disease [Recovered/Resolved]
  - Thrombosis [Not Recovered/Not Resolved]
